FAERS Safety Report 5320210-9 (Version None)
Quarter: 2007Q2

REPORT INFORMATION
  Report Type: 
  Country: None (occurrence: None)
  Receive Date: 20070509
  Receipt Date: 20070507
  Transmission Date: 20071010
  Serious: Yes (Hospitalization)
  Sender: FDA-Public Use
  Company Number: A0650271A

PATIENT
  Age: 80 Year
  Sex: Female

DRUGS (14)
  1. ADVAIR DISKUS 100/50 [Suspect]
     Indication: DYSPNOEA
     Dosage: 1PUFF TWICE PER DAY
     Route: 055
  2. ALBUTEROL [Concomitant]
  3. CATAPRES [Concomitant]
  4. ECOTRIN [Concomitant]
  5. AVAPRO [Concomitant]
  6. TEGRETOL [Concomitant]
  7. LEVOTHYROXINE SODIUM [Concomitant]
  8. LIPITOR [Concomitant]
  9. PHENOBARBITAL TAB [Concomitant]
  10. DEMADEX [Concomitant]
  11. COREG CR [Concomitant]
  12. NORVASC [Concomitant]
  13. FOSAMAX [Concomitant]
  14. VITAMIN B 12 INJECTION [Concomitant]

REACTIONS (8)
  - BLOOD PRESSURE ABNORMAL [None]
  - DEVICE MISUSE [None]
  - FATIGUE [None]
  - FEELING COLD [None]
  - MYOCARDIAL INFARCTION [None]
  - PAIN [None]
  - PNEUMONIA [None]
  - WRONG TECHNIQUE IN DRUG USAGE PROCESS [None]
